FAERS Safety Report 5970962-X (Version None)
Quarter: 2008Q4

REPORT INFORMATION
  Report Type: 
  Country: None (occurrence: None)
  Receive Date: 20081128
  Receipt Date: 20081119
  Transmission Date: 20090506
  Serious: Yes (Hospitalization)
  Sender: FDA-Public Use
  Company Number: PHHY2008BR28873

PATIENT
  Age: 67 Year
  Sex: Male

DRUGS (1)
  1. EXELON [Suspect]
     Indication: DEMENTIA ALZHEIMER'S TYPE
     Dosage: 1.5 MG, UNK

REACTIONS (9)
  - ABNORMAL BEHAVIOUR [None]
  - BEDRIDDEN [None]
  - PNEUMONIA [None]
  - PROSTATIC MASS [None]
  - PROSTATIC OPERATION [None]
  - PYREXIA [None]
  - SCAR [None]
  - URINARY TRACT INFECTION [None]
  - URINE ODOUR ABNORMAL [None]
